FAERS Safety Report 6839172-8 (Version None)
Quarter: 2010Q2

REPORT INFORMATION
  Report Type: 
  Country: None (occurrence: None)
  Receive Date: 20100625
  Receipt Date: 20090723
  Transmission Date: 20101027
  Serious: Yes (Life-Threatening, Hospitalization)
  Sender: FDA-Public Use
  Company Number: VISP-PR-0907S-0314

PATIENT
  Age: 89 Year
  Sex: Female
  Weight: 75.0249 kg

DRUGS (39)
  1. VISIPAQUE [Suspect]
     Indication: CHEST PAIN
     Dosage: 110 MG, THREE TIMES, I.V.
     Route: 042
     Dates: start: 20081020, end: 20081020
  2. CANGRELOG/PLACEBO (CODE NOT BROKEN) [Concomitant]
  3. CLOPIDOGREL/PLACEBO (CODE NOT BROKEN) [Concomitant]
  4. ACETYLSALICYLIC ACID [Concomitant]
  5. BIVALIRUDIN [Concomitant]
  6. ALPRAZOLAM [Concomitant]
  7. PHENYLEPHRINE HYDROCHLORIDE (NEO-SYNEOPHINE) [Concomitant]
  8. VANCOMYCIN [Concomitant]
  9. LACTOBACILLUS ACIDOPHILUS [Concomitant]
  10. GLYCERYLTRINITRATE (NITRO PASTE) [Concomitant]
  11. SENNA [Concomitant]
  12. MORPHINE [Concomitant]
  13. OXYCODONE AND ACETAMINOPHEN [Concomitant]
  14. POTASSIUM/SODIUM PHOSPHATES (NEUTRA-PHOS) [Concomitant]
  15. RAPID-ACTING INSULIN [Concomitant]
  16. PIPERACILLIN AND TAZOBACTAM [Concomitant]
  17. ALBUTEROL [Concomitant]
  18. CARVEDILOL [Concomitant]
  19. ONDANSETRON [Concomitant]
  20. METHIMAZOLE [Concomitant]
  21. ATROVENT [Concomitant]
  22. PROMETHAZINE (PHENERGAN) [Concomitant]
  23. EPITIFIBATIDE (INTEGRILLIN) [Concomitant]
  24. QUINAPRIL [Concomitant]
  25. AMITRIPTYLINE HYDROCHLORIDE [Concomitant]
  26. PIOGLITAZONE [Concomitant]
  27. ESOMEPRAZOLE MAGNESIUM [Concomitant]
  28. FUROSEMIDE [Concomitant]
  29. POTASSIUM [Concomitant]
  30. LOPRESSOR [Concomitant]
  31. PREDNISONE [Concomitant]
  32. ATORVASTATIN [Concomitant]
  33. SIMETHICONE [Concomitant]
  34. DOCUSATE SODIUM [Concomitant]
  35. CIPROFLOXACIN HCL [Concomitant]
  36. FERROUS SULFATE TAB [Concomitant]
  37. HEPARIN [Concomitant]
  38. ACETYLCYSTEINE [Concomitant]
  39. ACETAMINOPHEN [Concomitant]

REACTIONS (7)
  - ATRIAL FIBRILLATION [None]
  - BLOOD CREATININE INCREASED [None]
  - CHEST DISCOMFORT [None]
  - DYSPNOEA [None]
  - HYPOTENSION [None]
  - OLIGURIA [None]
  - RENAL FAILURE ACUTE [None]
